FAERS Safety Report 7924888-2 (Version None)
Quarter: 2011Q4

REPORT INFORMATION
  Report Type: 
  Country: None (occurrence: None)
  Receive Date: 20111118
  Receipt Date: 20110329
  Transmission Date: 20120403
  Serious: No
  Sender: FDA-Public Use
  Company Number: US-AMGEN-USASP2011016951

PATIENT
  Age: 69 Year
  Sex: Female

DRUGS (1)
  1. ENBREL [Suspect]
     Indication: ANKYLOSING SPONDYLITIS
     Dosage: 50 MG, QMO
     Dates: start: 20090801

REACTIONS (7)
  - TENSION HEADACHE [None]
  - DRY EYE [None]
  - CATARACT [None]
  - ARTHRALGIA [None]
  - EYE PAIN [None]
  - NECK PAIN [None]
  - BACK PAIN [None]
